FAERS Safety Report 15150148 (Version 1)
Quarter: 2018Q3

REPORT INFORMATION
  Report Type: Spontaneous
  Country: PL (occurrence: PL)
  Receive Date: 20180716
  Receipt Date: 20180716
  Transmission Date: 20181010
  Serious: Yes (Hospitalization)
  Sender: FDA-Public Use
  Company Number: PL-FRESENIUS KABI-FK201807740

PATIENT
  Age: 59 Year
  Sex: Male
  Weight: 81.5 kg

DRUGS (1)
  1. OXALIPLATIN (MANUFACTURER UNKNOWN) [Suspect]
     Active Substance: OXALIPLATIN
     Indication: RECTAL CANCER
     Route: 042
     Dates: start: 20130321, end: 20130321

REACTIONS (2)
  - Myocardial ischaemia [Unknown]
  - Back pain [Unknown]

NARRATIVE: CASE EVENT DATE: 20130321
